FAERS Safety Report 15363493 (Version 3)
Quarter: 2018Q4

REPORT INFORMATION
  Report Type: Report from Study
  Country: US (occurrence: US)
  Receive Date: 20180907
  Receipt Date: 20181011
  Transmission Date: 20190204
  Serious: Yes (Death, Other)
  Sender: FDA-Public Use
  Company Number: US-SUNOVION-2018SUN003449

PATIENT
  Sex: Male
  Weight: .73 kg

DRUGS (2)
  1. APTIOM [Suspect]
     Active Substance: ESLICARBAZEPINE ACETATE
     Indication: EPILEPSY
     Dosage: 800 MG, UNK
     Route: 064
     Dates: start: 20171009
  2. KEPPRA [Suspect]
     Active Substance: LEVETIRACETAM
     Indication: EPILEPSY
     Dosage: 3000 MG, UNK
     Route: 064
     Dates: start: 20171009

REACTIONS (4)
  - Intraventricular haemorrhage neonatal [Fatal]
  - Exposure during pregnancy [Recovered/Resolved]
  - Pulmonary haemorrhage [Fatal]
  - Premature baby [Fatal]
